FAERS Safety Report 16430673 (Version 1)
Quarter: 2019Q3

REPORT INFORMATION
  Report Type: Spontaneous
  Country: US (occurrence: US)
  Receive Date: 20190613
  Receipt Date: 20190613
  Transmission Date: 20191004
  Serious: Yes (Hospitalization)
  Sender: FDA-Public Use
  Company Number: None

PATIENT
  Sex: Female

DRUGS (12)
  1. WOMENS MULTIVITAMIN DAILY [Concomitant]
  2. FOLIC ACID TABLETS [Concomitant]
     Active Substance: FOLIC ACID
  3. SYNTHROID 100MCG TABLETS [Concomitant]
  4. CALCIUM + D3 600MG TABLETS [Concomitant]
  5. ZOCOR 10MG TABLETS [Concomitant]
  6. OMEPRAZOLE 10MG CAPSULES [Concomitant]
     Active Substance: OMEPRAZOLE
  7. METHOTREXATE 2.5MG TABLETS [Concomitant]
     Active Substance: METHOTREXATE
  8. ORENCIA [Suspect]
     Active Substance: ABATACEPT
     Indication: RHEUMATOID ARTHRITIS
     Dosage: ?          OTHER FREQUENCY:ONCE A WEEK;?
     Route: 058
     Dates: start: 20170920
  9. CELEXA 10MG TABLETS [Concomitant]
  10. LOSARTAN POTASSIUM 25MG TABLETS [Concomitant]
     Active Substance: LOSARTAN POTASSIUM
  11. MOBIC 7.5MG TABLETS [Concomitant]
  12. CYTOMEL 25MCG TABLETS [Concomitant]

REACTIONS (2)
  - Therapy cessation [None]
  - Gastroenteritis viral [None]
